FAERS Safety Report 8660046 (Version 5)
Quarter: 2013Q2

REPORT INFORMATION
  Report Type: Spontaneous
  Country: US (occurrence: US)
  Receive Date: 20120711
  Receipt Date: 20130423
  Transmission Date: 20140414
  Serious: Yes (Other)
  Sender: FDA-Public Use
  Company Number: US-PFIZER INC-2012163124

PATIENT
  Age: 65 Year
  Sex: Male
  Weight: 68.03 kg

DRUGS (14)
  1. SUTENT [Suspect]
     Indication: METASTATIC RENAL CELL CARCINOMA
     Dosage: 50 MG, CYCLIC
     Dates: start: 201205
  2. SUTENT [Suspect]
     Indication: RENAL CANCER
     Dosage: UNK
     Dates: start: 201206, end: 20130306
  3. NEXAVAR [Suspect]
     Indication: METASTATIC RENAL CELL CARCINOMA
     Dosage: UNK
     Dates: start: 20120424, end: 20120521
  4. PROVENTIL INHALER [Concomitant]
     Dosage: UNK
  5. SYMBICORT [Concomitant]
     Indication: ASTHMA
     Dosage: UNK
  6. MUCINEX [Concomitant]
     Dosage: UNK, DAILY
  7. NASONEX [Concomitant]
     Dosage: UNK, AS NEEDED
  8. CHONDROITIN/GLUCOSAMINE [Concomitant]
     Indication: ARTHRITIS
     Dosage: UNK
     Route: 061
  9. MOBIC [Concomitant]
     Dosage: UNK, 7.5-15 MG EVERY PM
  10. LOTEMAX [Concomitant]
     Dosage: UNK
  11. VITAMIN C [Concomitant]
     Dosage: UNK
  12. REFRESH [Concomitant]
     Dosage: UNK
  13. MELOXICAM [Concomitant]
     Indication: ARTHRITIS
     Dosage: UNK, DAILY
  14. VENTOLIN [Concomitant]
     Indication: ASTHMA
     Dosage: TWO PUFFS,1X/DAY

REACTIONS (22)
  - Transient ischaemic attack [Recovered/Resolved]
  - Hypertension [Unknown]
  - Prostatic disorder [Not Recovered/Not Resolved]
  - Pain in extremity [Unknown]
  - Dizziness [Unknown]
  - Arthritis [Unknown]
  - Musculoskeletal pain [Unknown]
  - Pain [Unknown]
  - Palmar-plantar erythrodysaesthesia syndrome [Unknown]
  - Asthenia [Unknown]
  - Fatigue [Unknown]
  - Lacrimation increased [Unknown]
  - Visual field defect [Unknown]
  - Glossodynia [Unknown]
  - Blood pressure abnormal [Unknown]
  - Dyspnoea [Unknown]
  - Vision blurred [Unknown]
  - Vitreous floaters [Unknown]
  - Sputum increased [Not Recovered/Not Resolved]
  - Sinus congestion [Not Recovered/Not Resolved]
  - Headache [Not Recovered/Not Resolved]
  - Sinusitis [Not Recovered/Not Resolved]
